FAERS Safety Report 9420853 (Version 1)
Quarter: 2013Q3

REPORT INFORMATION
  Report Type: Spontaneous
  Country: US (occurrence: US)
  Receive Date: 20130725
  Receipt Date: 20130725
  Transmission Date: 20140515
  Serious: No
  Sender: FDA-Public Use
  Company Number: US-ABBOTT-13P-163-1098078-00

PATIENT
  Age: 53 Year
  Sex: Female
  Weight: 53.57 kg

DRUGS (3)
  1. SYNTHROID [Suspect]
     Indication: HORMONE REPLACEMENT THERAPY
     Dosage: 125 MICROGRAMS FIVE DAYS A WEEK AND 112 MICROGRAMS ONCE A WEEK.
     Dates: start: 201109
  2. SYNTHROID [Suspect]
     Indication: HORMONE REPLACEMENT THERAPY
     Dosage: 125 MICROGRAMS FIVE DAYS A WEEK AND 112 MICROGRAMS ONCE A WEEK.
     Dates: start: 201109
  3. PROPRANOLOL [Concomitant]
     Indication: HEART RATE IRREGULAR

REACTIONS (2)
  - Hunger [Not Recovered/Not Resolved]
  - Fatigue [Not Recovered/Not Resolved]
